FAERS Safety Report 9721737 (Version 1)
Quarter: 2013Q4

REPORT INFORMATION
  Report Type: Spontaneous
  Country: US (occurrence: US)
  Receive Date: 20131201
  Receipt Date: 20131201
  Transmission Date: 20140711
  Serious: No
  Sender: FDA-Public Use
  Company Number: US-ABBVIE-13P-163-1147078-00

PATIENT
  Age: 53 Year
  Sex: Male
  Weight: 239.26 kg

DRUGS (17)
  1. ANDROGEL [Suspect]
     Indication: BLOOD TESTOSTERONE DECREASED
     Dates: start: 2011, end: 201306
  2. ANDROGEL [Suspect]
     Dates: start: 201307, end: 201308
  3. ANDROGEL [Suspect]
     Dates: start: 201308, end: 201309
  4. NEURONTIN [Concomitant]
     Indication: BACK PAIN
  5. MORPHINE [Concomitant]
     Indication: BACK PAIN
  6. METHADONE [Concomitant]
     Indication: BACK PAIN
  7. TRAMADOL [Concomitant]
     Indication: BACK PAIN
  8. SPIRONOLACTONE [Concomitant]
     Indication: CARDIAC FAILURE CONGESTIVE
  9. FUROSEMIDE [Concomitant]
     Indication: CARDIAC FAILURE CONGESTIVE
  10. POTASSIUM CHLORIDE [Concomitant]
     Indication: PROPHYLAXIS
  11. POTASSIUM CHLORIDE [Concomitant]
     Indication: BLOOD POTASSIUM DECREASED
  12. ALBUTEROL [Concomitant]
     Indication: ASTHMA
     Route: 055
  13. ALLOPURINOL [Concomitant]
     Indication: GOUT
  14. COLCRYS [Concomitant]
     Indication: GOUT
  15. EYE DROPS [Concomitant]
     Indication: DRY EYE
     Route: 047
  16. MULTIVITAMIN [Concomitant]
     Indication: VITAMIN SUPPLEMENTATION
  17. CALCIUM [Concomitant]
     Indication: MINERAL SUPPLEMENTATION

REACTIONS (3)
  - Blood testosterone increased [Recovered/Resolved]
  - Blood testosterone decreased [Recovered/Resolved]
  - Blood testosterone increased [Not Recovered/Not Resolved]
